FAERS Safety Report 10208772 (Version 2)
Quarter: 2014Q2

REPORT INFORMATION
  Report Type: Spontaneous
  Country: US (occurrence: US)
  Receive Date: 20140530
  Receipt Date: 20140623
  Transmission Date: 20141212
  Serious: Yes (Death, Hospitalization)
  Sender: FDA-Public Use
  Company Number: US-JNJFOC-20140519599

PATIENT
  Age: 72 Year
  Sex: Female
  Weight: 54 kg

DRUGS (30)
  1. IMBRUVICA [Suspect]
     Indication: WALDENSTROM^S MACROGLOBULINAEMIA
     Route: 048
  2. MULTIVITAMINS [Concomitant]
     Route: 048
     Dates: start: 20140421
  3. HYDREA [Concomitant]
     Indication: LYMPHADENOPATHY
     Dates: start: 20140501
  4. HYDREA [Concomitant]
     Indication: LYMPHADENOPATHY
     Dosage: 500 MG; 1 M-F
     Dates: start: 20140421
  5. HYDREA [Concomitant]
     Indication: LYMPHADENOPATHY
     Dates: start: 20121129, end: 20140425
  6. HYDREA [Concomitant]
     Indication: SPLENOMEGALY
     Dates: start: 20140501
  7. HYDREA [Concomitant]
     Indication: SPLENOMEGALY
     Dosage: 500 MG; 1 M-F
     Dates: start: 20140421
  8. HYDREA [Concomitant]
     Indication: SPLENOMEGALY
     Dates: start: 20121129, end: 20140425
  9. ZINC [Concomitant]
     Dosage: 5-6.25 MG DAILY
     Route: 048
     Dates: start: 20140421
  10. VITAMIN D [Concomitant]
     Dosage: 5000 IU WED AND SAT
  11. VITAMIN B12 [Concomitant]
     Route: 048
     Dates: start: 20140421
  12. ASPIRIN [Concomitant]
     Route: 048
     Dates: start: 20140421
  13. LIBRAX [Concomitant]
     Dosage: 05 MG-2.5 MG AC TID AND QHS PM
     Route: 048
     Dates: start: 20140421
  14. PROTONIX [Concomitant]
     Route: 048
     Dates: start: 20140421
  15. TRAMADOL [Concomitant]
     Route: 048
     Dates: start: 20140421
  16. XANAX [Concomitant]
     Route: 048
  17. COLACE [Concomitant]
     Route: 048
     Dates: start: 20140421
  18. ALLOPURINOL [Concomitant]
     Route: 048
     Dates: start: 20140421
  19. HYDROCODONE BITARTRATE AND ACETAMINOPHEN [Concomitant]
     Indication: PAIN
     Route: 048
     Dates: start: 20140421
  20. ATARAX [Concomitant]
     Route: 048
     Dates: start: 20140421
  21. METOCLOPRAMIDE [Concomitant]
     Route: 048
     Dates: start: 20140421
  22. DYAZIDE [Concomitant]
     Indication: OEDEMA
     Dates: start: 20140421
  23. KETOCONAZOLE [Concomitant]
     Route: 061
  24. TRIAMCINOLONE ACETONIDE [Concomitant]
     Route: 061
     Dates: start: 20140421
  25. ACYCLOVIR [Concomitant]
     Route: 048
     Dates: start: 20140421
  26. PROCHLORPERAZINE MALEATE [Concomitant]
     Indication: PREMEDICATION
     Route: 048
     Dates: start: 20140421
  27. PROCHLORPERAZINE MALEATE [Concomitant]
     Indication: NAUSEA
     Route: 048
     Dates: start: 20140421
  28. VITAMIN C [Concomitant]
     Route: 048
     Dates: start: 20140421
  29. OMEGA 3 FATTY ACIDS [Concomitant]
     Route: 048
     Dates: start: 20140421
  30. TOCOPHEROL [Concomitant]
     Route: 048
     Dates: start: 20140421

REACTIONS (14)
  - Cerebral haemorrhage [Fatal]
  - Mucosal haemorrhage [Unknown]
  - Gingival bleeding [Unknown]
  - Chest pain [Unknown]
  - Hyponatraemia [Unknown]
  - Leukocytosis [Unknown]
  - Confusional state [Not Recovered/Not Resolved]
  - Haematoma [Unknown]
  - Haemorrhage subcutaneous [Unknown]
  - Diarrhoea [Unknown]
  - Ecchymosis [Unknown]
  - Back pain [Unknown]
  - Musculoskeletal pain [Unknown]
  - Neck pain [Unknown]
